FAERS Safety Report 8185583 (Version 4)
Quarter: 2017Q3

REPORT INFORMATION
  Report Type: Spontaneous
  Country: US (occurrence: US)
  Receive Date: 20111018
  Receipt Date: 20170824
  Transmission Date: 20171128
  Serious: Yes (Other)
  Sender: FDA-Public Use
  Company Number: US-ASTRAZENECA-2010SE55588

PATIENT
  Age: 72 Year
  Sex: Female
  Weight: 88.5 kg

DRUGS (10)
  1. SYMBICORT [Suspect]
     Active Substance: BUDESONIDE\FORMOTEROL FUMARATE DIHYDRATE
     Indication: BRONCHITIS CHRONIC
     Dosage: 160/4.5 MCG ONE PUFF TWO TIMEAS A DAY
     Route: 055
     Dates: start: 2008, end: 201009
  2. SYMBICORT [Suspect]
     Active Substance: BUDESONIDE\FORMOTEROL FUMARATE DIHYDRATE
     Indication: ASTHMA
     Dosage: 160/4.5 MCG TWO PUFFS TWO TIMEAS A DAY
     Route: 055
     Dates: start: 201512
  3. SYMBICORT [Suspect]
     Active Substance: BUDESONIDE\FORMOTEROL FUMARATE DIHYDRATE
     Indication: ASTHMA
     Dosage: 160/4.5 MCG ONE PUFF TWO TIMEAS A DAY
     Route: 055
     Dates: start: 20170117
  4. DRY EYE EYE DROPS [Concomitant]
     Indication: DRY EYE
     Route: 047
  5. SYMBICORT [Suspect]
     Active Substance: BUDESONIDE\FORMOTEROL FUMARATE DIHYDRATE
     Indication: BRONCHITIS CHRONIC
     Dosage: 160/4.5 MCG TWO PUFFS TWO TIMEAS A DAY
     Route: 055
     Dates: start: 201512
  6. ALEVE [Concomitant]
     Active Substance: NAPROXEN SODIUM
     Indication: PAIN
     Route: 048
  7. VITAMINS NOS [Concomitant]
     Active Substance: VITAMINS
  8. SYMBICORT [Suspect]
     Active Substance: BUDESONIDE\FORMOTEROL FUMARATE DIHYDRATE
     Indication: BRONCHITIS CHRONIC
     Dosage: 160/4.5 MCG ONE PUFF TWO TIMEAS A DAY
     Route: 055
     Dates: start: 20170117
  9. ALBUTEROL. [Concomitant]
     Active Substance: ALBUTEROL
     Dosage: AS REQUIRED
     Route: 055
  10. SYMBICORT [Suspect]
     Active Substance: BUDESONIDE\FORMOTEROL FUMARATE DIHYDRATE
     Indication: ASTHMA
     Dosage: 160/4.5 MCG ONE PUFF TWO TIMEAS A DAY
     Route: 055
     Dates: start: 2008, end: 201009

REACTIONS (16)
  - Visual impairment [Not Recovered/Not Resolved]
  - Tremor [Unknown]
  - Weight increased [Unknown]
  - Migraine [Not Recovered/Not Resolved]
  - Product quality issue [Unknown]
  - Productive cough [Unknown]
  - Dyspnoea [Unknown]
  - Joint swelling [Unknown]
  - Off label use [Recovered/Resolved]
  - Arthropathy [Unknown]
  - Fibromyalgia [Not Recovered/Not Resolved]
  - Skin mass [Unknown]
  - Aphonia [Recovering/Resolving]
  - Retinoschisis [Not Recovered/Not Resolved]
  - Bronchial obstruction [Unknown]
  - Drug dose omission [Unknown]

NARRATIVE: CASE EVENT DATE: 2009
